FAERS Safety Report 4640049-7 (Version None)
Quarter: 2005Q2

REPORT INFORMATION
  Report Type: 
  Country: None (occurrence: None)
  Receive Date: 20050420
  Receipt Date: 20050418
  Transmission Date: 20051028
  Serious: Yes (Hospitalization)
  Sender: FDA-Public Use
  Company Number: PHBS2005BR05556

PATIENT
  Age: 12 Year
  Sex: Male
  Weight: 35 kg

DRUGS (2)
  1. TOFRANIL [Suspect]
     Indication: ATTENTION DEFICIT/HYPERACTIVITY DISORDER
     Dosage: 1 DF, QHS
     Route: 048
     Dates: start: 20041101
  2. RITALINA [Suspect]
     Indication: ATTENTION DEFICIT/HYPERACTIVITY DISORDER
     Dosage: 10 MG, QD
     Route: 048
     Dates: start: 20041101

REACTIONS (12)
  - ANOREXIA [None]
  - BLOOD PRESSURE DECREASED [None]
  - BLOOD PRESSURE FLUCTUATION [None]
  - CHROMATURIA [None]
  - DEPRESSED MOOD [None]
  - DEPRESSIVE SYMPTOM [None]
  - DIARRHOEA [None]
  - HEPATITIS B [None]
  - HYPERTENSION [None]
  - JAUNDICE [None]
  - VOMITING [None]
  - WEIGHT DECREASED [None]
